FAERS Safety Report 4464633-9 (Version None)
Quarter: 2004Q3

REPORT INFORMATION
  Report Type: 
  Country: None (occurrence: None)
  Receive Date: 20040928
  Receipt Date: 20040906
  Transmission Date: 20050211
  Serious: Yes (Hospitalization)
  Sender: FDA-Public Use
  Company Number: B0345228A

PATIENT
  Age: 34 Year
  Sex: Female
  Weight: 58.8769 kg

DRUGS (1)
  1. AUGMENTIN [Suspect]
     Dosage: ORAL
     Route: 048
     Dates: start: 20030201

REACTIONS (3)
  - ANGIONEUROTIC OEDEMA [None]
  - DYSPNOEA [None]
  - TONGUE OEDEMA [None]
